FAERS Safety Report 12210440 (Version 1)
Quarter: 2016Q1

REPORT INFORMATION
  Report Type: Spontaneous
  Country: US (occurrence: US)
  Receive Date: 20160325
  Receipt Date: 20160325
  Transmission Date: 20160526
  Serious: Yes (Hospitalization)
  Sender: FDA-Public Use
  Company Number: US-ACTAVIS-2016-06504

PATIENT
  Age: 35 Year
  Sex: Female

DRUGS (2)
  1. PREDNISOLONE (WATSON LABORATORIES) [Suspect]
     Active Substance: PREDNISOLONE
     Indication: PRODUCT USED FOR UNKNOWN INDICATION
     Dosage: UNK
     Route: 065
  2. FUROSEMIDE (WATSON LABORATORIES) [Suspect]
     Active Substance: FUROSEMIDE
     Indication: PRODUCT USED FOR UNKNOWN INDICATION
     Dosage: 40 MG, BID
     Route: 065

REACTIONS (3)
  - Supraventricular extrasystoles [Unknown]
  - Hypokalaemia [Unknown]
  - Supraventricular tachycardia [Unknown]
